FAERS Safety Report 8544682-1 (Version None)
Quarter: 2012Q3

REPORT INFORMATION
  Report Type: 
  Country: None (occurrence: None)
  Receive Date: 20120727
  Receipt Date: 20120329
  Transmission Date: 20120928
  Serious: No
  Sender: FDA-Public Use
  Company Number: US-ASTRAZENECA-2012SE09357

PATIENT
  Age: 66 Year
  Sex: Female

DRUGS (14)
  1. METOPROLOL SUCCINATE [Suspect]
     Route: 048
  2. SEROQUEL XR [Suspect]
     Route: 048
  3. CLONAZEPAM [Concomitant]
  4. TYLONOL [Concomitant]
     Dosage: AS NEEDED
  5. LEVOXYL [Concomitant]
  6. PROAIR HFA [Concomitant]
  7. SEROQUEL XR [Suspect]
     Route: 048
  8. CYMBALTA [Concomitant]
  9. TEMAZEPAM [Concomitant]
  10. PREMARIN [Concomitant]
  11. FENOFIBRATE [Concomitant]
  12. XOPENEX [Concomitant]
     Dosage: 0.63/3 ML, AS NEEDED
  13. IMODIUM [Concomitant]
     Dosage: AS NEEDED
  14. SPIRIVA [Concomitant]

REACTIONS (7)
  - WRONG TECHNIQUE IN DRUG USAGE PROCESS [None]
  - HYPERTENSION [None]
  - CHRONIC OBSTRUCTIVE PULMONARY DISEASE [None]
  - EMPHYSEMA [None]
  - THYROID DISORDER [None]
  - BRONCHITIS CHRONIC [None]
  - CROHN'S DISEASE [None]
